FAERS Safety Report 4854469-9 (Version None)
Quarter: 2005Q4

REPORT INFORMATION
  Report Type: 
  Country: None (occurrence: None)
  Receive Date: 20051213
  Receipt Date: 20051123
  Transmission Date: 20060501
  Serious: Yes (Hospitalization)
  Sender: FDA-Public Use
  Company Number: RU200511001488

PATIENT
  Age: 23 Year
  Sex: Female

DRUGS (1)
  1. OLANZAPINE [Suspect]
     Dosage: UNK, ORAL
     Route: 048

REACTIONS (9)
  - ASTHENIA [None]
  - ERYTHEMA [None]
  - FAECES DISCOLOURED [None]
  - HEART RATE INCREASED [None]
  - NEUTROPHIL PERCENTAGE INCREASED [None]
  - PERITONITIS [None]
  - RED BLOOD CELL SEDIMENTATION RATE INCREASED [None]
  - TONGUE DISCOLOURATION [None]
  - WHITE BLOOD CELL COUNT INCREASED [None]
